FAERS Safety Report 13534909 (Version 1)
Quarter: 2017Q2

REPORT INFORMATION
  Report Type: Spontaneous
  Country: US (occurrence: US)
  Receive Date: 20170510
  Receipt Date: 20170510
  Transmission Date: 20170830
  Serious: Yes (Hospitalization)
  Sender: FDA-Public Use
  Company Number: None

PATIENT
  Age: 85 Year
  Sex: Male
  Weight: 71.3 kg

DRUGS (20)
  1. AMLODIPINE [Concomitant]
     Active Substance: AMLODIPINE BESYLATE
  2. COENZYME Q10 [Concomitant]
     Active Substance: UBIDECARENONE
  3. VITAMIN B12 [Concomitant]
     Active Substance: CYANOCOBALAMIN
  4. CYTOXAN [Concomitant]
     Active Substance: CYCLOPHOSPHAMIDE
  5. AVODART [Concomitant]
     Active Substance: DUTASTERIDE
  6. MULTIVITAMIN [Concomitant]
     Active Substance: VITAMINS
  7. B1 [Concomitant]
  8. HYDRALAZINE [Concomitant]
     Active Substance: HYDRALAZINE HYDROCHLORIDE
  9. LACTULOSE. [Concomitant]
     Active Substance: LACTULOSE
  10. MELATONIN [Concomitant]
     Active Substance: MELATONIN
  11. COLACE [Concomitant]
     Active Substance: DOCUSATE SODIUM
  12. PRAVASTATIN. [Concomitant]
     Active Substance: PRAVASTATIN
  13. TYLENOL [Concomitant]
     Active Substance: ACETAMINOPHEN
  14. VALACYCLOVIR [Suspect]
     Active Substance: VALACYCLOVIR HYDROCHLORIDE
     Indication: HERPES ZOSTER
     Route: 048
     Dates: start: 20170504, end: 20170506
  15. DECADRON [Concomitant]
     Active Substance: DEXAMETHASONE
  16. PROLIA [Concomitant]
     Active Substance: DENOSUMAB
  17. NORCO [Concomitant]
     Active Substance: ACETAMINOPHEN\HYDROCODONE BITARTRATE
  18. BACTRIM DS [Suspect]
     Active Substance: SULFAMETHOXAZOLE\TRIMETHOPRIM
     Indication: URINARY TRACT INFECTION
     Route: 048
     Dates: start: 20170504, end: 20170506
  19. CALCIUM CARBONATE. [Concomitant]
     Active Substance: CALCIUM CARBONATE
  20. B6 [Concomitant]
     Active Substance: PYRIDOXINE HYDROCHLORIDE

REACTIONS (3)
  - Haemodialysis [None]
  - Mental status changes [None]
  - Drug prescribing error [None]

NARRATIVE: CASE EVENT DATE: 20170506
